FAERS Safety Report 10289706 (Version 1)
Quarter: 2014Q3

REPORT INFORMATION
  Report Type: Spontaneous
  Country: US (occurrence: US)
  Receive Date: 20140710
  Receipt Date: 20140710
  Transmission Date: 20150326
  Serious: Yes (Other)
  Sender: FDA-Public Use
  Company Number: US-JNJFOC-20140702652

PATIENT
  Age: 23 Year
  Sex: Male

DRUGS (3)
  1. INVEGA SUSTENNA [Suspect]
     Active Substance: PALIPERIDONE PALMITATE
     Indication: PRODUCT USED FOR UNKNOWN INDICATION
     Dosage: THE PATIENT GOT FIRST INITIATION DOSE ON AN UNSPECIFIED DATE IN FEB.
     Route: 030
  2. INVEGA SUSTENNA [Suspect]
     Active Substance: PALIPERIDONE PALMITATE
     Indication: PRODUCT USED FOR UNKNOWN INDICATION
     Dosage: THE PATIENT GOT THE MAINTANENCE DOSE ON AN UNSPECIFIED DATE IN APR
     Route: 030
  3. INVEGA SUSTENNA [Suspect]
     Active Substance: PALIPERIDONE PALMITATE
     Indication: PRODUCT USED FOR UNKNOWN INDICATION
     Dosage: PALIPERIDONE PALMITATE WAS INITIATED ON AN UNSPECIFIED DATE IN JANAURY
     Route: 030

REACTIONS (3)
  - Suicide attempt [Unknown]
  - Drug dose omission [Unknown]
  - Treatment noncompliance [Unknown]
